FAERS Safety Report 11940405 (Version 1)
Quarter: 2016Q1

REPORT INFORMATION
  Report Type: Spontaneous
  Country: US (occurrence: US)
  Receive Date: 20160122
  Receipt Date: 20160122
  Transmission Date: 20160526
  Serious: No
  Sender: FDA-Public Use
  Company Number: US-DYAX CORP.-2015DX000228

PATIENT
  Age: 62 Year
  Sex: Female
  Weight: 70.37 kg

DRUGS (2)
  1. SYNTHROID [Concomitant]
     Active Substance: LEVOTHYROXINE SODIUM
     Indication: THYROIDECTOMY
     Route: 065
  2. KALBITOR [Suspect]
     Active Substance: ECALLANTIDE
     Indication: HEREDITARY ANGIOEDEMA
     Route: 058
     Dates: start: 2014

REACTIONS (3)
  - Dysphonia [Not Recovered/Not Resolved]
  - Aspartate aminotransferase increased [Not Recovered/Not Resolved]
  - Alanine aminotransferase increased [Not Recovered/Not Resolved]

NARRATIVE: CASE EVENT DATE: 201503
